FAERS Safety Report 5867424-7 (Version None)
Quarter: 2008Q3

REPORT INFORMATION
  Report Type: 
  Country: None (occurrence: None)
  Receive Date: 20080902
  Receipt Date: 20080902
  Transmission Date: 20090109
  Serious: Yes (Hospitalization)
  Sender: FDA-Public Use
  Company Number: PHEH1996US00147

PATIENT
  Sex: Male
  Weight: 117.6 kg

DRUGS (7)
  1. NEORAL [Suspect]
     Route: 048
     Dates: start: 19950816
  2. BACTRIM DS [Concomitant]
  3. PREDNISONE TAB [Concomitant]
  4. PEPCID [Concomitant]
  5. CARDURA [Concomitant]
  6. TEGRETOL [Concomitant]
  7. TYLOX [Concomitant]

REACTIONS (1)
  - ABSCESS [None]
